FAERS Safety Report 25933387 (Version 1)
Quarter: 2025Q4

REPORT INFORMATION
  Report Type: Spontaneous
  Country: US (occurrence: US)
  Receive Date: 20251017
  Receipt Date: 20251017
  Transmission Date: 20260117
  Serious: Yes (Other)
  Sender: ACCORD
  Company Number: US-Accord-508832

PATIENT

DRUGS (3)
  1. HYDROXYCHLOROQUINE [Suspect]
     Active Substance: HYDROXYCHLOROQUINE
     Route: 064
  2. POTASSIUM BICARBONATE [Suspect]
     Active Substance: POTASSIUM BICARBONATE
     Route: 064
  3. PREDNISONE [Suspect]
     Active Substance: PREDNISONE
     Route: 064

REACTIONS (3)
  - Neonatal lupus erythematosus [Unknown]
  - Premature baby [Unknown]
  - Foetal exposure during pregnancy [Unknown]
